FAERS Safety Report 8450307-6 (Version None)
Quarter: 2012Q2

REPORT INFORMATION
  Report Type: 
  Country: None (occurrence: None)
  Receive Date: 20120620
  Receipt Date: 20120608
  Transmission Date: 20120825
  Serious: Yes (Other)
  Sender: FDA-Public Use
  Company Number: AU-MILLENNIUM PHARMACEUTICALS, INC.-2012-04146

PATIENT

DRUGS (3)
  1. DEXAMETHASONE [Concomitant]
  2. THALIDOMIDE [Concomitant]
  3. VELCADE [Suspect]
     Indication: PRODUCT USED FOR UNKNOWN INDICATION
     Dosage: 1.3 MG/M2, UNK
     Route: 042

REACTIONS (1)
  - CARDIOMYOPATHY [None]
